FAERS Safety Report 4368575-9 (Version None)
Quarter: 2004Q2

REPORT INFORMATION
  Report Type: 
  Country: None (occurrence: None)
  Receive Date: 20040528
  Receipt Date: 20040514
  Transmission Date: 20050107
  Serious: Yes (Hospitalization, Disabling)
  Sender: FDA-Public Use
  Company Number: 2004AP01943

PATIENT
  Age: 62 Year
  Sex: Female
  Weight: 54.3 kg

DRUGS (10)
  1. IRESSA [Suspect]
     Indication: NON-SMALL CELL LUNG CANCER
     Dosage: 250 MG DAILY PO
     Route: 048
     Dates: start: 20020611, end: 20020101
  2. IRESSA [Suspect]
     Indication: NON-SMALL CELL LUNG CANCER
     Dosage: 250 MG DAILY PO
     Route: 048
     Dates: end: 20040221
  3. MGO [Concomitant]
  4. CELEBREX [Concomitant]
  5. GEMCITABINE [Concomitant]
  6. IRESSA [Suspect]
     Indication: NON-SMALL CELL LUNG CANCER
     Dosage: 250 MG DAILY PO
     Route: 048
     Dates: start: 20040228
  7. IRESSA [Suspect]
     Indication: NON-SMALL CELL LUNG CANCER
     Dosage: 250 MG DAILY PO
     Route: 048
  8. CISPLATIN [Concomitant]
  9. PACLITAXEL [Concomitant]
  10. RADIOTHERAPY [Concomitant]

REACTIONS (14)
  - ARACHNOID CYST [None]
  - ASTHENIA [None]
  - BONE MARROW DEPRESSION [None]
  - CEREBROSPINAL FLUID LEAKAGE [None]
  - CSF LYMPHOCYTE COUNT INCREASED [None]
  - HEADACHE [None]
  - HYPERSENSITIVITY [None]
  - IMPAIRED HEALING [None]
  - METASTASES TO CENTRAL NERVOUS SYSTEM [None]
  - MUSCULAR WEAKNESS [None]
  - MYELITIS TRANSVERSE [None]
  - POST PROCEDURAL COMPLICATION [None]
  - SENSORY LOSS [None]
  - URINARY INCONTINENCE [None]
